FAERS Safety Report 16693079 (Version 1)
Quarter: 2019Q4

REPORT INFORMATION
  Report Type: Spontaneous
  Country: US (occurrence: US)
  Receive Date: 20190810
  Receipt Date: 20190810
  Transmission Date: 20200122
  Serious: Yes (Disabling)
  Sender: FDA-Public Use
  Company Number: None

PATIENT
  Age: 47 Year
  Sex: Female
  Weight: 56.25 kg

DRUGS (7)
  1. IBUPROFEN. [Concomitant]
     Active Substance: IBUPROFEN
  2. CJHLORZOXAZONE [Concomitant]
  3. METOPROLOL. [Concomitant]
     Active Substance: METOPROLOL
  4. BOTOX [Suspect]
     Active Substance: ONABOTULINUMTOXINA
     Indication: MIGRAINE
     Route: 030
     Dates: start: 20190521, end: 20190521
  5. DIAZEPAM 2 MG [Concomitant]
  6. DIHYDRIERGOTAMINE MESYLATE [Concomitant]
  7. TRAMADOL 100 MG [Concomitant]
     Active Substance: TRAMADOL

REACTIONS (6)
  - Palpitations [None]
  - Headache [None]
  - Heart rate increased [None]
  - Dysphagia [None]
  - Dyspnoea [None]
  - Pain [None]

NARRATIVE: CASE EVENT DATE: 20190521
